FAERS Safety Report 7487403-6 (Version None)
Quarter: 2011Q2

REPORT INFORMATION
  Report Type: 
  Country: None (occurrence: None)
  Receive Date: 20110518
  Receipt Date: 20110504
  Transmission Date: 20111010
  Serious: Yes (Hospitalization, Other)
  Sender: FDA-Public Use
  Company Number: US-ELI_LILLY_AND_COMPANY-US201007007504

PATIENT
  Sex: Female

DRUGS (13)
  1. AVAPRO [Concomitant]
     Route: 065
  2. PROGRAF [Concomitant]
     Dosage: 1 MG, OTHER
     Route: 065
  3. LYRICA [Concomitant]
     Route: 065
  4. BACTRIM [Concomitant]
     Route: 065
  5. FORTEO [Suspect]
     Dosage: 20 UG, QD
  6. FORTEO [Suspect]
     Dosage: 20 UG, QD
     Route: 065
  7. PROCHLORPERAZINE TAB [Concomitant]
     Indication: ABDOMINAL DISCOMFORT
     Route: 065
  8. FORTEO [Suspect]
     Indication: OSTEOPOROSIS
     Dosage: 20 UG, DAILY (1/D)
     Dates: start: 20090101
  9. PREDNISONE [Concomitant]
     Route: 065
  10. CELLCEPT [Concomitant]
     Route: 065
  11. XELODA [Concomitant]
     Route: 065
  12. FORTEO [Suspect]
     Dosage: 20 UG, DAILY (1/D)
     Dates: start: 20110101, end: 20110201
  13. ZOCOR [Concomitant]
     Route: 065

REACTIONS (9)
  - URINARY TRACT INFECTION [None]
  - BLOOD PRESSURE INCREASED [None]
  - RECTAL CANCER [None]
  - COLONIC OBSTRUCTION [None]
  - GASTROINTESTINAL DISORDER [None]
  - ABDOMINAL PAIN UPPER [None]
  - SEPSIS [None]
  - COLON CANCER [None]
  - NERVOUSNESS [None]
